FAERS Safety Report 21308245 (Version 1)
Quarter: 2022Q3

REPORT INFORMATION
  Report Type: Spontaneous
  Country: US (occurrence: US)
  Receive Date: 20220908
  Receipt Date: 20220908
  Transmission Date: 20221027
  Serious: Yes (Hospitalization, Other)
  Sender: FDA-Public Use
  Company Number: US-AMGEN-USASP2022151116

PATIENT
  Age: 75 Year
  Sex: Male

DRUGS (4)
  1. XGEVA [Suspect]
     Active Substance: DENOSUMAB
     Indication: Hypercalcaemia of malignancy
     Route: 065
  2. NIVOLUMAB [Concomitant]
     Active Substance: NIVOLUMAB
  3. IPILIMUMAB [Concomitant]
     Active Substance: IPILIMUMAB
  4. ZOLEDRONIC ACID [Concomitant]
     Active Substance: ZOLEDRONIC ACID
     Dosage: 2 INFUSIONS

REACTIONS (5)
  - Hypercalcaemia of malignancy [Recovering/Resolving]
  - Disease progression [Not Recovered/Not Resolved]
  - Therapy non-responder [Unknown]
  - Blood parathyroid hormone decreased [Unknown]
  - Blood 1,25-dihydroxycholecalciferol increased [Unknown]
